FAERS Safety Report 6813801-7 (Version None)
Quarter: 2010Q3

REPORT INFORMATION
  Report Type: 
  Country: None (occurrence: None)
  Receive Date: 20100702
  Receipt Date: 20100318
  Transmission Date: 20110219
  Serious: Yes (Hospitalization)
  Sender: FDA-Public Use
  Company Number: US-ASTRAZENECA-2006UW10977

PATIENT
  Age: 12200 Day
  Sex: Female
  Weight: 63.5 kg

DRUGS (30)
  1. SEROQUEL [Suspect]
     Indication: DEPRESSION
     Dosage: 25-100 MG
     Route: 048
     Dates: start: 20021101, end: 20040901
  2. SEROQUEL [Suspect]
     Dosage: 100 TO 600 MG
     Route: 048
     Dates: start: 20040527
  3. GEODON [Concomitant]
  4. RISPERDAL [Concomitant]
  5. ZYPREXA [Concomitant]
     Dosage: 15 TO 25 MG
     Dates: start: 20031113, end: 20040805
  6. EFFEXOR [Concomitant]
  7. TRAZODONE HYDROCHLORIDE [Concomitant]
  8. LIBRAX [Concomitant]
  9. PLAVIX [Concomitant]
  10. XOPENEX [Concomitant]
  11. ADVAIR DISKUS 100/50 [Concomitant]
  12. NEXIUM [Concomitant]
  13. ACTOS [Concomitant]
     Dates: start: 20070330
  14. PREMARIN [Concomitant]
  15. MOBIC [Concomitant]
  16. SYNTHROID [Concomitant]
  17. NEURONTIN [Concomitant]
     Dates: start: 20070330
  18. HYZAAR [Concomitant]
  19. FLONASE [Concomitant]
  20. ASTELIN [Concomitant]
     Dates: start: 20070330
  21. SINGULAIR [Concomitant]
     Dates: start: 20070330
  22. PERCOCET [Concomitant]
  23. MIRALAX [Concomitant]
  24. SKELAXIN [Concomitant]
  25. VALIUM [Concomitant]
  26. BUSPAR [Concomitant]
  27. COMBIVENT [Concomitant]
  28. COZAAR [Concomitant]
  29. ULTRACET [Concomitant]
  30. PREDNISONE TAB [Concomitant]

REACTIONS (31)
  - ABDOMINAL PAIN [None]
  - ABDOMINAL WALL HAEMATOMA [None]
  - CHEST PAIN [None]
  - CHONDROMALACIA [None]
  - CONSTIPATION [None]
  - DIARRHOEA [None]
  - DYSPNOEA [None]
  - GASTRITIS [None]
  - GASTROENTERITIS [None]
  - GASTROINTESTINAL HAEMORRHAGE [None]
  - GLOMUS TUMOUR [None]
  - HEMIPARESIS [None]
  - HYPOKALAEMIA [None]
  - HYPOTENSION [None]
  - HYPOVOLAEMIA [None]
  - HYPOXIA [None]
  - INCISIONAL HERNIA [None]
  - INTESTINAL OBSTRUCTION [None]
  - MALAISE [None]
  - NAUSEA [None]
  - OBESITY [None]
  - PALPITATIONS [None]
  - PHARYNGITIS [None]
  - SYNOVIAL CYST [None]
  - TENOSYNOVITIS STENOSANS [None]
  - TRANSIENT ISCHAEMIC ATTACK [None]
  - TYPE 2 DIABETES MELLITUS [None]
  - VERTIGO [None]
  - VOMITING [None]
  - WOUND DEHISCENCE [None]
  - WRIST FRACTURE [None]
